FAERS Safety Report 10632489 (Version 1)
Quarter: 2014Q4

REPORT INFORMATION
  Report Type: Spontaneous
  Country: US (occurrence: US)
  Receive Date: 20141205
  Receipt Date: 20141205
  Transmission Date: 20150529
  Serious: Yes (Hospitalization)
  Sender: FDA-Public Use
  Company Number: US-BRISTOL-MYERS SQUIBB COMPANY-21521091

PATIENT
  Age: 82 Year
  Sex: Female

DRUGS (1)
  1. SPRYCEL [Suspect]
     Active Substance: DASATINIB
     Dates: start: 20140930, end: 20141015

REACTIONS (2)
  - Fluid retention [Unknown]
  - Rash [Unknown]

NARRATIVE: CASE EVENT DATE: 2014
